FAERS Safety Report 5293812-6 (Version None)
Quarter: 2007Q2

REPORT INFORMATION
  Report Type: 
  Country: None (occurrence: None)
  Receive Date: 20070411
  Receipt Date: 20070330
  Transmission Date: 20071010
  Serious: Yes (Other)
  Sender: FDA-Public Use
  Company Number: US-PFIZER INC-2006117210

PATIENT
  Age: 57 Year
  Sex: Male

DRUGS (21)
  1. NEURONTIN [Suspect]
     Indication: DIABETIC NEUROPATHY
  2. NEURONTIN [Suspect]
     Indication: PAIN IN EXTREMITY
  3. NEURONTIN [Suspect]
     Indication: BACK PAIN
  4. LASIX [Concomitant]
  5. HYDROXYZINE [Concomitant]
  6. TYLENOL W/ CODEINE NO. 3 [Concomitant]
  7. PYRIDOXINE HYDROCHLORIDE [Concomitant]
  8. PAXIL [Concomitant]
  9. HYDROCHLOROTHIAZIDE [Concomitant]
  10. GLYBURIDE [Concomitant]
  11. ANTIVERT ^PFIZER^ [Concomitant]
  12. SIMVASTATIN [Concomitant]
  13. MORPHINE SULFATE [Concomitant]
  14. ATENOLOL [Concomitant]
  15. CLOPIDOGREL [Concomitant]
  16. TIAZAC [Concomitant]
  17. QUETIAPINE FUMARATE [Concomitant]
  18. ISOSORBIDE [Concomitant]
  19. THEO-DUR [Concomitant]
  20. RANITIDINE [Concomitant]
  21. TERAZOSIN HCL [Concomitant]

REACTIONS (4)
  - ACUTE RESPIRATORY FAILURE [None]
  - DRUG INEFFECTIVE [None]
  - INTENTIONAL OVERDOSE [None]
  - SUICIDE ATTEMPT [None]
